FAERS Safety Report 4782578-1 (Version None)
Quarter: 2005Q3

REPORT INFORMATION
  Report Type: 
  Country: None (occurrence: None)
  Receive Date: 20050929
  Receipt Date: 20050330
  Transmission Date: 20060218
  Serious: No
  Sender: FDA-Public Use
  Company Number: 401228

PATIENT
  Sex: Male

DRUGS (2)
  1. COREG [Suspect]
     Indication: HYPERTENSION
     Dosage: 50MG PER DAY
     Route: 048
  2. METOPROLOL [Concomitant]

REACTIONS (2)
  - DIZZINESS [None]
  - FEELING DRUNK [None]
